FAERS Safety Report 16571309 (Version 1)
Quarter: 2019Q3

REPORT INFORMATION
  Report Type: Spontaneous
  Country: US (occurrence: US)
  Receive Date: 20190531
  Receipt Date: 20190531
  Transmission Date: 20191004
  Serious: Yes (Congenital Anomaly)
  Sender: FDA-Public Use
  Company Number: None

PATIENT
  Sex: Female

DRUGS (5)
  1. AMLODIPINE TAB [Concomitant]
  2. TYKERB [Suspect]
     Active Substance: LAPATINIB DITOSYLATE
     Indication: NEOPLASM MALIGNANT
     Route: 048
  3. DEXAMETHASON TAB [Concomitant]
  4. ATORVASTATIN TAB [Concomitant]
     Active Substance: ATORVASTATIN
  5. KEPPRA SOL [Concomitant]

REACTIONS (3)
  - Fatigue [None]
  - Dizziness [None]
  - Fall [None]
